FAERS Safety Report 4515118-2 (Version None)
Quarter: 2004Q4

REPORT INFORMATION
  Report Type: 
  Country: None (occurrence: None)
  Receive Date: 20041129
  Receipt Date: 20041129
  Transmission Date: 20050328
  Serious: Yes (Hospitalization)
  Sender: FDA-Public Use
  Company Number: None

PATIENT
  Age: 82 Year
  Sex: Male
  Weight: 70 kg

DRUGS (8)
  1. PACLITAXEL [Suspect]
     Indication: BLADDER CANCER
     Dosage: 370MG IV DAY 1
     Route: 042
     Dates: start: 20041108
  2. CARBOPLATIN [Suspect]
     Indication: BLADDER CANCER
     Dosage: 325 MG IV DAY 1
     Route: 042
     Dates: start: 20041108
  3. GEMCITABINE [Suspect]
     Indication: BLADDER CANCER
     Dosage: 1500 MG IV DAY 1,8
     Route: 042
     Dates: start: 20041108
  4. GEMCITABINE [Suspect]
     Indication: BLADDER CANCER
     Dosage: 1500 MG IV DAY 1,8
     Route: 042
     Dates: start: 20041115
  5. GRANISETRON [Concomitant]
  6. DEXOMETHOSONE [Concomitant]
  7. DEPHENHYDRAMINE [Concomitant]
  8. FAMOTIDINE [Concomitant]

REACTIONS (3)
  - CATHETER RELATED COMPLICATION [None]
  - HAEMATURIA [None]
  - THROMBOSIS [None]
